FAERS Safety Report 4752137-5 (Version None)
Quarter: 2005Q3

REPORT INFORMATION
  Report Type: 
  Country: None (occurrence: None)
  Receive Date: 20050825
  Receipt Date: 20050124
  Transmission Date: 20060218
  Serious: Yes (Life-Threatening, Hospitalization)
  Sender: FDA-Public Use
  Company Number: GBWYE364724JAN05

PATIENT
  Sex: Female

DRUGS (14)
  1. ENBREL [Suspect]
     Indication: RHEUMATOID ARTHRITIS
     Dosage: UNKNOWN
     Route: 058
     Dates: start: 20041222, end: 20050101
  2. METHOTREXATE [Suspect]
     Dosage: UNKNOWN
     Route: 048
     Dates: start: 20040101
  3. RELIFEX [Suspect]
     Route: 048
     Dates: start: 20040102, end: 20050123
  4. TRAMADOL HCL [Suspect]
  5. FOLIC ACID [Concomitant]
     Dates: start: 20040101
  6. FERROUS SULFATE TAB [Concomitant]
     Dates: start: 20000101
  7. CALCIUM CARBONATE [Concomitant]
     Dates: start: 19971217
  8. COLECALCIFEROL [Concomitant]
     Dates: start: 19971217
  9. FOSAMAX [Concomitant]
     Dates: start: 20010406
  10. ACETAMINOPHEN W/ CODEINE [Concomitant]
     Dates: start: 20040608
  11. PANTOPRAZOLE [Concomitant]
     Dates: start: 20041001
  12. PREDNISOLONE [Concomitant]
     Dates: start: 19970101
  13. METOCLOPRAMIDE [Concomitant]
  14. LANSOPRAZOLE [Concomitant]

REACTIONS (6)
  - ALVEOLITIS [None]
  - DYSPNOEA [None]
  - HYPERTENSION [None]
  - LEFT VENTRICULAR FAILURE [None]
  - LUNG DISORDER [None]
  - LUNG INFECTION [None]
